FAERS Safety Report 10963927 (Version 2)
Quarter: 2015Q2

REPORT INFORMATION
  Report Type: Spontaneous
  Country: US (occurrence: US)
  Receive Date: 20150328
  Receipt Date: 20150524
  Transmission Date: 20150821
  Serious: Yes (Hospitalization)
  Sender: FDA-Public Use
  Company Number: US-JNJFOC-20130911714

PATIENT
  Age: 81 Year
  Sex: Male
  Weight: 102.06 kg

DRUGS (14)
  1. RAMIPRIL. [Concomitant]
     Active Substance: RAMIPRIL
     Route: 048
  2. GLIPIZIDE ER [Concomitant]
     Active Substance: GLIPIZIDE
     Route: 048
  3. METOPROLOL [Concomitant]
     Active Substance: METOPROLOL
     Route: 065
  4. COUMADIN [Concomitant]
     Active Substance: WARFARIN SODIUM
     Route: 048
  5. AMLODIPINE [Concomitant]
     Active Substance: AMLODIPINE BESYLATE
     Route: 048
  6. SIMVASTATIN. [Concomitant]
     Active Substance: SIMVASTATIN
     Route: 048
  7. PREDNISONE. [Concomitant]
     Active Substance: PREDNISONE
     Indication: PROSTATE CANCER
     Route: 048
     Dates: start: 20130805
  8. NORVASC [Concomitant]
     Active Substance: AMLODIPINE BESYLATE
     Route: 048
  9. XANAX [Concomitant]
     Active Substance: ALPRAZOLAM
     Route: 065
  10. ASPIRIN. [Concomitant]
     Active Substance: ASPIRIN
     Route: 048
  11. METAMUCIL [Concomitant]
     Active Substance: PLANTAGO SEED
     Route: 065
  12. LORAZEPAM. [Concomitant]
     Active Substance: LORAZEPAM
     Route: 048
  13. CRESTOR [Concomitant]
     Active Substance: ROSUVASTATIN CALCIUM
     Route: 065
  14. FENTANYL. [Suspect]
     Active Substance: FENTANYL
     Indication: PRODUCT USED FOR UNKNOWN INDICATION
     Route: 042

REACTIONS (1)
  - Cardio-respiratory arrest [Recovered/Resolved]

NARRATIVE: CASE EVENT DATE: 20130827
